FAERS Safety Report 6113087-5 (Version None)
Quarter: 2009Q1

REPORT INFORMATION
  Report Type: 
  Country: None (occurrence: None)
  Receive Date: 20090312
  Receipt Date: 20090305
  Transmission Date: 20090719
  Serious: Yes (Other)
  Sender: FDA-Public Use
  Company Number: FR-BRISTOL-MYERS SQUIBB COMPANY-14509285

PATIENT
  Age: 74 Year
  Sex: Male

DRUGS (10)
  1. DASATINIB [Suspect]
     Indication: ACUTE LYMPHOCYTIC LEUKAEMIA
     Dosage: INTERRUPTED ON 30JAN2009
     Route: 048
     Dates: start: 20090126
  2. VINCRISTINE SULFATE [Suspect]
     Indication: ACUTE LYMPHOCYTIC LEUKAEMIA
     Route: 042
     Dates: start: 20090126
  3. DEXAMETHASONE [Suspect]
     Indication: ACUTE LYMPHOCYTIC LEUKAEMIA
     Route: 042
     Dates: start: 20090126
  4. SOLU-MEDROL [Concomitant]
  5. LASIX [Concomitant]
  6. ZYLORIC [Concomitant]
  7. ATARAX [Concomitant]
  8. NEXIUM [Concomitant]
  9. DUPHALAC [Concomitant]
  10. ACTRAPID [Concomitant]

REACTIONS (1)
  - CYTOLYTIC HEPATITIS [None]
